FAERS Safety Report 20629383 (Version 1)
Quarter: 2022Q1

REPORT INFORMATION
  Report Type: Report from Study
  Country: CZ (occurrence: CZ)
  Receive Date: 20220323
  Receipt Date: 20220323
  Transmission Date: 20220424
  Serious: Yes (Hospitalization)
  Sender: FDA-Public Use
  Company Number: CZ-TEVA-2022-CZ-2018807

PATIENT
  Age: 68 Year
  Sex: Female

DRUGS (3)
  1. BETAXOLOL [Suspect]
     Active Substance: BETAXOLOL
     Indication: Hypertension
     Dosage: 20 MILLIGRAM DAILY;
     Route: 065
  2. NITRENDIPINE [Suspect]
     Active Substance: NITRENDIPINE
     Indication: Hypertension
     Dosage: 20 MILLIGRAM DAILY;
     Route: 065
  3. RAMIPRIL [Suspect]
     Active Substance: RAMIPRIL
     Indication: Hypertension
     Dosage: 5 MILLIGRAM DAILY;
     Route: 065

REACTIONS (1)
  - Spinal epidural haematoma [Recovered/Resolved]
